FAERS Safety Report 18706072 (Version 2)
Quarter: 2021Q1

REPORT INFORMATION
  Report Type: Report from Study
  Country: TR (occurrence: TR)
  Receive Date: 20210106
  Receipt Date: 20210215
  Transmission Date: 20210419
  Serious: Yes (Other)
  Sender: FDA-Public Use
  Company Number: TR-TEVA-2020-TR-1865099

PATIENT
  Age: 33 Year
  Sex: Female

DRUGS (3)
  1. ETOPOSIDE. [Suspect]
     Active Substance: ETOPOSIDE
     Indication: CHRONIC MYELOID LEUKAEMIA
     Route: 065
  2. INTERFERON [Suspect]
     Active Substance: INTERFERON
     Indication: CHRONIC MYELOID LEUKAEMIA
     Route: 065
  3. CYTARABINE. [Suspect]
     Active Substance: CYTARABINE
     Indication: CHRONIC MYELOID LEUKAEMIA
     Route: 065

REACTIONS (3)
  - Second primary malignancy [Recovered/Resolved]
  - Ovarian cancer [Recovered/Resolved]
  - Drug ineffective [Unknown]
